FAERS Safety Report 5178978-0 (Version None)
Quarter: 2006Q4

REPORT INFORMATION
  Report Type: 
  Country: None (occurrence: None)
  Receive Date: 20061215
  Receipt Date: 20061215
  Transmission Date: 20070319
  Serious: Yes (Hospitalization)
  Sender: FDA-Public Use
  Company Number: None

PATIENT
  Age: 54 Year
  Sex: Male

DRUGS (4)
  1. REVLIMID [Suspect]
     Indication: MULTIPLE MYELOMA
     Dosage: 10MG   DAILY   PO
     Route: 048
     Dates: start: 20060821, end: 20061205
  2. TEMAZEPAM [Concomitant]
  3. QUININE SULFATE [Concomitant]
  4. AVELOX [Concomitant]

REACTIONS (2)
  - HEADACHE [None]
  - PNEUMONIA [None]
